FAERS Safety Report 7001394-3 (Version None)
Quarter: 2010Q3

REPORT INFORMATION
  Report Type: 
  Country: None (occurrence: None)
  Receive Date: 20100920
  Receipt Date: 20100309
  Transmission Date: 20110219
  Serious: No
  Sender: FDA-Public Use
  Company Number: US-ASTRAZENECA-2009SE16775

PATIENT
  Age: 592 Month
  Sex: Female
  Weight: 104.3 kg

DRUGS (3)
  1. SEROQUEL [Suspect]
     Indication: BIPOLAR DISORDER
     Route: 048
     Dates: start: 19980101, end: 20010101
  2. RISPERDAL [Concomitant]
  3. LITHIUM [Concomitant]

REACTIONS (2)
  - OBESITY [None]
  - TYPE 2 DIABETES MELLITUS [None]
